FAERS Safety Report 6144959-3 (Version None)
Quarter: 2009Q2

REPORT INFORMATION
  Report Type: 
  Country: None (occurrence: None)
  Receive Date: 20090406
  Receipt Date: 20090406
  Transmission Date: 20091009
  Serious: Yes (Hospitalization, Other)
  Sender: FDA-Public Use
  Company Number: US-PFIZER INC-2005147705

PATIENT
  Sex: Male
  Weight: 88.45 kg

DRUGS (16)
  1. NEURONTIN [Suspect]
     Indication: NEURALGIA
     Route: 048
  2. NEURONTIN [Suspect]
  3. NEURONTIN [Suspect]
     Indication: NEUROPATHY PERIPHERAL
  4. LYRICA [Suspect]
     Indication: NEUROPATHY PERIPHERAL
     Route: 048
     Dates: start: 20051001
  5. LYRICA [Suspect]
     Indication: NEURALGIA
  6. LYRICA [Suspect]
  7. LYRICA [Suspect]
  8. ANTIDEPRESSANTS [Suspect]
     Indication: ILL-DEFINED DISORDER
     Route: 065
  9. ANALGESICS [Suspect]
     Indication: PAIN
     Route: 065
  10. SECTRAL [Concomitant]
     Route: 048
  11. NEXIUM [Concomitant]
     Route: 048
  12. PROTONIX [Concomitant]
     Route: 048
     Dates: end: 20051031
  13. KLONOPIN [Concomitant]
     Route: 065
  14. LEVAQUIN [Concomitant]
     Route: 065
     Dates: end: 20051031
  15. MEPRON [Concomitant]
     Route: 065
  16. AZITHROMYCIN [Concomitant]
     Route: 065

REACTIONS (24)
  - AGITATION [None]
  - ALTERED STATE OF CONSCIOUSNESS [None]
  - ANGER [None]
  - BABESIOSIS [None]
  - BLOOD PRESSURE INCREASED [None]
  - CHEST DISCOMFORT [None]
  - DELUSION [None]
  - DRUG INEFFECTIVE [None]
  - ENERGY INCREASED [None]
  - EUPHORIC MOOD [None]
  - FATIGUE [None]
  - FEELING ABNORMAL [None]
  - HALLUCINATION [None]
  - HEART RATE INCREASED [None]
  - IMPULSE-CONTROL DISORDER [None]
  - INAPPROPRIATE AFFECT [None]
  - INSOMNIA [None]
  - LYME DISEASE [None]
  - MOVEMENT DISORDER [None]
  - NERVOUSNESS [None]
  - NEUROPATHY PERIPHERAL [None]
  - PALPITATIONS [None]
  - PELVIC FLOOR MUSCLE WEAKNESS [None]
  - TREMOR [None]
